FAERS Safety Report 4881779-1 (Version None)
Quarter: 2006Q1

REPORT INFORMATION
  Report Type: 
  Country: None (occurrence: None)
  Receive Date: 20060112
  Receipt Date: 20060103
  Transmission Date: 20060701
  Serious: Yes (Other)
  Sender: FDA-Public Use
  Company Number: 2006003580

PATIENT
  Age: 81 Year
  Sex: Female
  Weight: 65.7716 kg

DRUGS (5)
  1. DETROL LA [Suspect]
     Indication: URINARY INCONTINENCE
     Dosage: 4 MG (4 MG, 1 IN 1 D), ORAL
     Route: 048
     Dates: start: 20050901
  2. FOSAMAX [Concomitant]
  3. ESTRACE [Concomitant]
  4. GLUCOSAMINE (GLUCOSAMINE) [Concomitant]
  5. CHONDROITIN (CHONDROITIN SULFATE) [Concomitant]

REACTIONS (3)
  - KNEE ARTHROPLASTY [None]
  - PAIN [None]
  - THERAPY NON-RESPONDER [None]
